FAERS Safety Report 15076670 (Version 2)
Quarter: 2018Q3

REPORT INFORMATION
  Report Type: Spontaneous
  Country: DE (occurrence: DE)
  Receive Date: 20180627
  Receipt Date: 20180704
  Transmission Date: 20181010
  Serious: Yes (Hospitalization)
  Sender: FDA-Public Use
  Company Number: DE-PFIZER INC-2018254061

PATIENT
  Age: 85 Year
  Sex: Male
  Weight: 72 kg

DRUGS (7)
  1. METOPROLOL. [Suspect]
     Active Substance: METOPROLOL
     Dosage: 47.5 MG, 1X/DAY
     Route: 048
  2. TAMSULOSIN [Concomitant]
     Active Substance: TAMSULOSIN
     Dosage: 0.4 MG, 1X/DAY
     Route: 048
  3. TARGIN [Suspect]
     Active Substance: NALOXONE HYDROCHLORIDE\OXYCODONE HYDROCHLORIDE
     Dosage: 2.5 MG, 2X/DAY (5|2.5 MG, 1?0?1?0, RETARD?TABLETTEN)
     Route: 048
  4. CLOPIDOGREL [Concomitant]
     Active Substance: CLOPIDOGREL BISULFATE
     Dosage: 75 MG, 2X/DAY
     Route: 048
  5. RAMIPRIL. [Suspect]
     Active Substance: RAMIPRIL
     Dosage: 2.5 MG, 1X/DAY
     Route: 048
  6. FENTANYL. [Suspect]
     Active Substance: FENTANYL
     Dosage: 12 UG, UNK
     Route: 062
  7. RIVAROXABAN [Concomitant]
     Active Substance: RIVAROXABAN
     Dosage: 30 MG, 1X/DAY
     Route: 048

REACTIONS (4)
  - Wound [Unknown]
  - Drug prescribing error [Unknown]
  - Fall [Unknown]
  - Dizziness [Unknown]
